FAERS Safety Report 12155534 (Version 1)
Quarter: 2016Q1

REPORT INFORMATION
  Report Type: Report from Study
  Country: US (occurrence: US)
  Receive Date: 20160307
  Receipt Date: 20160307
  Transmission Date: 20160526
  Serious: Yes (Hospitalization)
  Sender: FDA-Public Use
  Company Number: US-ACTELION-A-US2015-128746

PATIENT
  Age: 71 Year
  Sex: Female

DRUGS (1)
  1. MACITENTAN [Suspect]
     Active Substance: MACITENTAN
     Indication: PULMONARY HYPERTENSION
     Dosage: 10 MG, QD
     Route: 048
     Dates: start: 20151218

REACTIONS (6)
  - Headache [Unknown]
  - Dyspnoea [Unknown]
  - Pneumonia [Unknown]
  - Heart rate decreased [Unknown]
  - Nasal congestion [Unknown]
  - Nasopharyngitis [Unknown]
